FAERS Safety Report 23857924 (Version 1)
Quarter: 2024Q2

REPORT INFORMATION
  Report Type: Spontaneous
  Country: US (occurrence: None)
  Receive Date: 20240514
  Receipt Date: 20240514
  Transmission Date: 20240716
  Serious: No
  Sender: FDA-Public Use
  Company Number: None

PATIENT
  Sex: Female

DRUGS (7)
  1. HUMIRA [Suspect]
     Active Substance: ADALIMUMAB
     Indication: Rheumatoid arthritis
     Route: 058
     Dates: start: 20220316
  2. HUMIRA [Suspect]
     Active Substance: ADALIMUMAB
     Indication: Rheumatoid factor negative
  3. HUMIRA [Suspect]
     Active Substance: ADALIMUMAB
     Indication: Polyarthritis
  4. ALLI [Concomitant]
     Active Substance: ORLISTAT
  5. LANTUS [Concomitant]
     Active Substance: INSULIN GLARGINE
  6. LEVOCETIRIZI [Concomitant]
  7. METHOTREXATE [Concomitant]
     Active Substance: METHOTREXATE

REACTIONS (5)
  - Pain [None]
  - Arthralgia [None]
  - Surgery [None]
  - Therapy interrupted [None]
  - Drug ineffective [None]
